FAERS Safety Report 24861519 (Version 1)
Quarter: 2025Q1

REPORT INFORMATION
  Report Type: Report from Study
  Country: US (occurrence: US)
  Receive Date: 20250120
  Receipt Date: 20250120
  Transmission Date: 20250408
  Serious: Yes (Hospitalization, Other)
  Sender: ABBVIE
  Company Number: US-ABBVIE-6090589

PATIENT
  Age: 43 Year
  Sex: Male

DRUGS (1)
  1. RINVOQ [Suspect]
     Active Substance: UPADACITINIB
     Indication: Product used for unknown indication
     Route: 048

REACTIONS (3)
  - Septic arthritis staphylococcal [Recovering/Resolving]
  - Ostomy bag placement [Unknown]
  - Stress [Unknown]

NARRATIVE: CASE EVENT DATE: 20240805
